FAERS Safety Report 6769708-7 (Version None)
Quarter: 2010Q2

REPORT INFORMATION
  Report Type: 
  Country: None (occurrence: None)
  Receive Date: 20100615
  Receipt Date: 20100609
  Transmission Date: 20101027
  Serious: Yes (Hospitalization, Other)
  Sender: FDA-Public Use
  Company Number: US-SANOFI-AVENTIS-2010SA033795

PATIENT
  Sex: Female

DRUGS (5)
  1. PLAVIX [Suspect]
     Route: 048
     Dates: start: 20000101
  2. PLAVIX [Suspect]
     Route: 048
     Dates: start: 20000101
  3. SIMVASTATIN [Concomitant]
  4. COREG [Concomitant]
  5. ALL OTHER THERAPEUTIC PRODUCTS [Concomitant]

REACTIONS (6)
  - CARDIAC FAILURE CONGESTIVE [None]
  - CHOLELITHIASIS [None]
  - CHRONIC SINUSITIS [None]
  - HERPES ZOSTER [None]
  - INTESTINAL OBSTRUCTION [None]
  - MALAISE [None]
